FAERS Safety Report 16291942 (Version 8)
Quarter: 2019Q4

REPORT INFORMATION
  Report Type: Report from Study
  Country: US (occurrence: US)
  Receive Date: 20190509
  Receipt Date: 20191001
  Transmission Date: 20200122
  Serious: Yes (Other)
  Sender: FDA-Public Use
  Company Number: US-TEVA-2019-US-1046400

PATIENT
  Age: 56 Year
  Sex: Male

DRUGS (11)
  1. CLOZAPINE TEVA [Suspect]
     Active Substance: CLOZAPINE
     Route: 048
  2. CLOZAPINE TEVA [Suspect]
     Active Substance: CLOZAPINE
     Route: 048
  3. MIDODRINE [Concomitant]
     Active Substance: MIDODRINE
     Route: 065
  4. OMEPRAZOLE. [Concomitant]
     Active Substance: OMEPRAZOLE
     Route: 065
  5. METOPROLOL. [Concomitant]
     Active Substance: METOPROLOL
     Route: 065
  6. LITHIUM. [Concomitant]
     Active Substance: LITHIUM
     Route: 065
  7. CLOZAPINE TEVA [Suspect]
     Active Substance: CLOZAPINE
     Route: 048
     Dates: end: 20190614
  8. FEXOFENADINE [Concomitant]
     Active Substance: FEXOFENADINE HYDROCHLORIDE
     Route: 065
  9. LEVOTHYROXINE. [Concomitant]
     Active Substance: LEVOTHYROXINE
     Route: 065
  10. BENZTROPINE. [Concomitant]
     Active Substance: BENZTROPINE
     Route: 065
  11. KEPPRA [Concomitant]
     Active Substance: LEVETIRACETAM
     Route: 065

REACTIONS (4)
  - Leukopenia [Unknown]
  - Granulocytopenia [Recovered/Resolved]
  - Neutropenia [Unknown]
  - Agranulocytosis [Recovered/Resolved]

NARRATIVE: CASE EVENT DATE: 20190613
